FAERS Safety Report 6191731-4 (Version None)
Quarter: 2009Q2

REPORT INFORMATION
  Report Type: 
  Country: None (occurrence: None)
  Receive Date: 20090515
  Receipt Date: 20090506
  Transmission Date: 20091009
  Serious: Yes (Hospitalization)
  Sender: FDA-Public Use
  Company Number: FR-WYE-G02791208

PATIENT
  Sex: Female
  Weight: 61 kg

DRUGS (2)
  1. TORISEL [Suspect]
     Indication: RENAL CANCER METASTATIC
     Route: 042
     Dates: start: 20080623, end: 20081208
  2. AVASTIN [Suspect]
     Indication: RENAL CANCER METASTATIC
     Route: 042
     Dates: start: 20080623, end: 20081208

REACTIONS (1)
  - RECTAL HAEMORRHAGE [None]
